FAERS Safety Report 4864770-0 (Version None)
Quarter: 2005Q4

REPORT INFORMATION
  Report Type: 
  Country: None (occurrence: None)
  Receive Date: 20051222
  Receipt Date: 20050714
  Transmission Date: 20060501
  Serious: Yes (Hospitalization)
  Sender: FDA-Public Use
  Company Number: US-MERCK-0507USA02097

PATIENT
  Age: 59 Year
  Sex: Male
  Weight: 133 kg

DRUGS (7)
  1. VIOXX [Suspect]
     Route: 048
     Dates: start: 19990601, end: 20040901
  2. AVANDIA [Concomitant]
     Route: 065
  3. ACCUPRIL [Concomitant]
     Route: 065
  4. CELEBREX [Suspect]
     Route: 065
  5. LANOXIN [Concomitant]
     Route: 065
  6. LOPID [Concomitant]
     Route: 065
  7. GLUCOVANCE [Concomitant]
     Route: 065

REACTIONS (29)
  - ANGINA UNSTABLE [None]
  - ASTHENIA [None]
  - ATRIAL FIBRILLATION [None]
  - ATRIAL FLUTTER [None]
  - ATRIAL TACHYCARDIA [None]
  - BLOOD BICARBONATE DECREASED [None]
  - BLOOD GLUCOSE INCREASED [None]
  - CARDIAC FAILURE CONGESTIVE [None]
  - CHEST DISCOMFORT [None]
  - CHEST PAIN [None]
  - CORONARY ARTERY DISEASE [None]
  - DIASTOLIC DYSFUNCTION [None]
  - DIZZINESS [None]
  - DYSPNOEA [None]
  - ELECTROCARDIOGRAM ST SEGMENT ABNORMAL [None]
  - ENDOMETRIAL HYPERPLASIA [None]
  - EXTRASYSTOLES [None]
  - FATIGUE [None]
  - HYPOGLYCAEMIA [None]
  - ISCHAEMIC CARDIOMYOPATHY [None]
  - MITRAL VALVE INCOMPETENCE [None]
  - NAUSEA [None]
  - POLLAKIURIA [None]
  - POLYP [None]
  - SHOULDER PAIN [None]
  - SLEEP DISORDER [None]
  - SOMNOLENCE [None]
  - TACHYCARDIA [None]
  - TREMOR [None]
